FAERS Safety Report 19955872 (Version 1)
Quarter: 2021Q4

REPORT INFORMATION
  Report Type: Spontaneous
  Country: US (occurrence: US)
  Receive Date: 20211014
  Receipt Date: 20211014
  Transmission Date: 20220303
  Serious: Yes (Other)
  Sender: FDA-Public Use
  Company Number: US-JNJFOC-20211019181

PATIENT
  Sex: Male
  Weight: 112.59 kg

DRUGS (2)
  1. XARELTO [Suspect]
     Active Substance: RIVAROXABAN
     Indication: Thrombosis prophylaxis
     Route: 048
     Dates: start: 202108
  2. INSULIN NOS [Concomitant]
     Active Substance: INSULIN NOS

REACTIONS (3)
  - Haemorrhage [Unknown]
  - Prothrombin time prolonged [Unknown]
  - International normalised ratio increased [Unknown]
